FAERS Safety Report 22722471 (Version 2)
Quarter: 2024Q1

REPORT INFORMATION
  Report Type: Spontaneous
  Country: US (occurrence: US)
  Receive Date: 20230719
  Receipt Date: 20240313
  Transmission Date: 20240410
  Serious: No
  Sender: FDA-Public Use
  Company Number: US-GSK-US2023096829

PATIENT
  Sex: Female

DRUGS (1)
  1. BENLYSTA [Suspect]
     Active Substance: BELIMUMAB
     Indication: Systemic lupus erythematosus
     Dosage: UNK
     Route: 042

REACTIONS (4)
  - Exposure during pregnancy [Unknown]
  - Foetal exposure during pregnancy [Unknown]
  - Live birth [Unknown]
  - Therapy interrupted [Unknown]
